FAERS Safety Report 24253755 (Version 1)
Quarter: 2024Q3

REPORT INFORMATION
  Report Type: Spontaneous
  Country: US (occurrence: None)
  Receive Date: 20240826
  Receipt Date: 20240826
  Transmission Date: 20241016
  Serious: Yes (Hospitalization)
  Sender: Public
  Company Number: None

PATIENT
  Age: 62 Year
  Sex: Male

DRUGS (1)
  1. CAPECITABINE [Suspect]
     Active Substance: CAPECITABINE
     Indication: Carcinoid tumour pulmonary
     Dosage: FREQUENCY : TWICE A DAY;?
     Route: 048

REACTIONS (10)
  - Flank pain [None]
  - Metastatic neoplasm [None]
  - Liver disorder [None]
  - Pancreatitis [None]
  - Product dose omission issue [None]
  - Back pain [None]
  - Tumour pain [None]
  - Abdominal discomfort [None]
  - Pain in extremity [None]
  - Joint swelling [None]
